FAERS Safety Report 8124420-7 (Version None)
Quarter: 2012Q1

REPORT INFORMATION
  Report Type: 
  Country: None (occurrence: None)
  Receive Date: 20120209
  Receipt Date: 20120202
  Transmission Date: 20120608
  Serious: Yes (Congenital Anomaly)
  Sender: FDA-Public Use
  Company Number: DE-SANOFI-AVENTIS-2012SA007348

PATIENT
  Sex: Male

DRUGS (1)
  1. HYDROXYCHLOROQUINE SULFATE [Suspect]
     Route: 064

REACTIONS (2)
  - PSYCHOMOTOR HYPERACTIVITY [None]
  - MATERNAL EXPOSURE DURING PREGNANCY [None]
